FAERS Safety Report 10692852 (Version 1)
Quarter: 2015Q1

REPORT INFORMATION
  Report Type: Spontaneous
  Country: US (occurrence: None)
  Receive Date: 20150105
  Receipt Date: 20150105
  Transmission Date: 20150720
  Serious: Yes (Disabling)
  Sender: FDA-Public Use
  Company Number: None

PATIENT
  Age: 51 Year
  Sex: Male
  Weight: 96.62 kg

DRUGS (1)
  1. DOXYCYCLINE HYCLATE. [Suspect]
     Active Substance: DOXYCYCLINE HYCLATE
     Indication: URINARY TRACT INFECTION
     Dosage: 20 PILLS TWICE DAILY
     Dates: start: 20131223, end: 20131228

REACTIONS (3)
  - Dyspepsia [None]
  - Abdominal pain [None]
  - Abdominal discomfort [None]

NARRATIVE: CASE EVENT DATE: 20131227
